FAERS Safety Report 20059424 (Version 2)
Quarter: 2021Q4

REPORT INFORMATION
  Report Type: Report from Study
  Country: US (occurrence: US)
  Receive Date: 20211111
  Receipt Date: 20211201
  Transmission Date: 20220303
  Serious: Yes (Hospitalization)
  Sender: FDA-Public Use
  Company Number: US-TEVA-2021-US-1976322

PATIENT
  Age: 5 Year
  Sex: Male
  Weight: 25.2 kg

DRUGS (6)
  1. METHOTREXATE [Suspect]
     Active Substance: METHOTREXATE
     Indication: Acute lymphocytic leukaemia
     Dosage: 10 MILLIGRAM EVERY 7 DAYS
     Route: 048
     Dates: start: 20210921
  2. METHOTREXATE [Suspect]
     Active Substance: METHOTREXATE
     Indication: Acute lymphocytic leukaemia
     Dosage: 12 MILLIGRAM DAILY;
     Route: 037
     Dates: start: 20190816
  3. PREDNISONE [Suspect]
     Active Substance: PREDNISONE
     Indication: Acute lymphocytic leukaemia
     Dosage: 20 MG DAILY, 15 MG NIGHTLY
     Route: 048
     Dates: start: 20201119
  4. VINCRISTINE [Suspect]
     Active Substance: VINCRISTINE
     Indication: Acute lymphocytic leukaemia
     Dosage: 1.4 MILLIGRAM DAILY;
     Route: 042
     Dates: start: 20210826
  5. MERCAPTOPURINE [Suspect]
     Active Substance: MERCAPTOPURINE
     Indication: Acute lymphocytic leukaemia
     Route: 048
     Dates: start: 20211018
  6. RUXOLITINIB [Suspect]
     Active Substance: RUXOLITINIB
     Indication: Acute lymphocytic leukaemia
     Dosage: 90 MILLIGRAM DAILY;
     Route: 048
     Dates: start: 20210921

REACTIONS (1)
  - Pneumococcal bacteraemia [Recovered/Resolved]

NARRATIVE: CASE EVENT DATE: 20211015
